FAERS Safety Report 7347856-0 (Version None)
Quarter: 2011Q1

REPORT INFORMATION
  Report Type: 
  Country: None (occurrence: None)
  Receive Date: 20110311
  Receipt Date: 20110301
  Transmission Date: 20110831
  Serious: Yes (Hospitalization, Other)
  Sender: FDA-Public Use
  Company Number: US-JNJFOC-20110301413

PATIENT
  Age: 40 Year
  Sex: Female

DRUGS (5)
  1. REMICADE [Suspect]
     Indication: PRODUCT USED FOR UNKNOWN INDICATION
     Route: 042
  2. HUMIRA [Suspect]
     Indication: CROHN'S DISEASE
  3. HUMIRA [Suspect]
  4. BUTALBITAL [Concomitant]
  5. SUMATRIPTAN [Concomitant]

REACTIONS (6)
  - SIGMOIDECTOMY [None]
  - ILEOSTOMY [None]
  - ANAPHYLACTIC REACTION [None]
  - ANASTOMOTIC LEAK [None]
  - COLORECTOSTOMY [None]
  - WOUND INFECTION [None]
